FAERS Safety Report 20081326 (Version 2)
Quarter: 2021Q4

REPORT INFORMATION
  Report Type: Report from Study
  Country: CA (occurrence: CA)
  Receive Date: 20211117
  Receipt Date: 20211228
  Transmission Date: 20220304
  Serious: Yes (Hospitalization, Other)
  Sender: FDA-Public Use
  Company Number: CA-NOVARTISPH-NVSC2021CA184092

PATIENT
  Age: 53 Year
  Sex: Male
  Weight: 83 kg

DRUGS (8)
  1. COSENTYX [Suspect]
     Active Substance: SECUKINUMAB
     Indication: Psoriasis
     Dosage: 300 MG, QMO
     Route: 058
     Dates: start: 20200206, end: 20200305
  2. COSENTYX [Suspect]
     Active Substance: SECUKINUMAB
     Dosage: 300 MG, QMO
     Route: 058
     Dates: start: 20200226, end: 20210805
  3. COSENTYX [Suspect]
     Active Substance: SECUKINUMAB
     Dosage: 300 MG, QMO
     Route: 058
     Dates: start: 20200427, end: 20210810
  4. COSENTYX [Suspect]
     Active Substance: SECUKINUMAB
     Dosage: UNK
     Route: 058
     Dates: start: 20210115, end: 20210727
  5. CELECOXIB [Concomitant]
     Active Substance: CELECOXIB
     Indication: Pain
     Dosage: 200 MG, BID
     Route: 065
     Dates: start: 20211002, end: 20211005
  6. HYDROMORPHONE [Concomitant]
     Active Substance: HYDROMORPHONE
     Indication: Pain
     Dosage: 1 MG, EVERY 4 HOURS
     Route: 065
     Dates: start: 20211002, end: 20211005
  7. CRESTOR [Concomitant]
     Active Substance: ROSUVASTATIN CALCIUM
     Indication: Pain
     Dosage: 20 MG, QD
     Route: 065
     Dates: start: 20210206, end: 20210810
  8. SYNTHROID [Concomitant]
     Active Substance: LEVOTHYROXINE SODIUM
     Indication: Pain
     Dosage: 50 MG, QD
     Route: 065
     Dates: start: 20210206, end: 20210810

REACTIONS (4)
  - Cholecystitis acute [Recovered/Resolved]
  - Non-Hodgkin^s lymphoma [Not Recovered/Not Resolved]
  - Axillary mass [Not Recovered/Not Resolved]
  - Fatigue [Recovered/Resolved]

NARRATIVE: CASE EVENT DATE: 20210201
